FAERS Safety Report 15763939 (Version 1)
Quarter: 2018Q4

REPORT INFORMATION
  Report Type: Spontaneous
  Country: JP (occurrence: JP)
  Receive Date: 20181227
  Receipt Date: 20181227
  Transmission Date: 20190205
  Serious: Yes (Life-Threatening, Hospitalization, Other)
  Sender: FDA-Public Use
  Company Number: JP-009507513-1806JPN000831J

PATIENT
  Age: 64 Year
  Sex: Male
  Weight: 62 kg

DRUGS (5)
  1. DEXART [Concomitant]
     Active Substance: DEXAMETHASONE SODIUM PHOSPHATE
     Indication: CEREBRAL OEDEMA MANAGEMENT
     Dosage: 3.3 MG, BID
     Route: 041
     Dates: start: 20180426, end: 20180524
  2. KEYTRUDA [Suspect]
     Active Substance: PEMBROLIZUMAB
     Indication: LUNG ADENOCARCINOMA
     Dosage: 200 MG, Q3W
     Route: 041
     Dates: start: 20180320, end: 20180514
  3. CEFAZOLIN [Concomitant]
     Active Substance: CEFAZOLIN
     Indication: SURGERY
     Dosage: 1 G, QD
     Route: 041
     Dates: start: 20180524, end: 20180526
  4. GLYCEREB [Concomitant]
     Active Substance: FRUCTOSE\GLYCERIN
     Indication: CEREBRAL OEDEMA MANAGEMENT
     Dosage: 200 ML, BID
     Route: 041
     Dates: start: 20180426, end: 20180524
  5. GLYCEREB [Concomitant]
     Active Substance: FRUCTOSE\GLYCERIN
     Dosage: 200 ML, QD
     Route: 041
     Dates: start: 20180525, end: 20180528

REACTIONS (5)
  - Colitis [Not Recovered/Not Resolved]
  - Thrombocytopenia [Recovered/Resolved]
  - Malignant neoplasm progression [Unknown]
  - Diarrhoea [Not Recovered/Not Resolved]
  - Interstitial lung disease [Recovering/Resolving]

NARRATIVE: CASE EVENT DATE: 20180531
